FAERS Safety Report 4810497-0 (Version None)
Quarter: 2005Q4

REPORT INFORMATION
  Report Type: 
  Country: None (occurrence: None)
  Receive Date: 20051025
  Receipt Date: 20051025
  Transmission Date: 20060501
  Serious: Yes (Hospitalization)
  Sender: FDA-Public Use
  Company Number: None

PATIENT
  Age: 71 Year
  Sex: Male

DRUGS (8)
  1. ETODOLAC TAB 400MG [Suspect]
     Dosage: PO BID
     Route: 048
     Dates: start: 20041025, end: 20050829
  2. ASPIRIN [Suspect]
     Dosage: 81MG
  3. ETODOLAC [Concomitant]
  4. FERROUS SULFATE TAB [Concomitant]
  5. MULTI-VITAMIN [Concomitant]
  6. RANITIDINE HCL [Concomitant]
  7. THIAMINE HCL [Concomitant]
  8. ASPIRIN [Concomitant]

REACTIONS (3)
  - ANAEMIA [None]
  - DISEASE PROGRESSION [None]
  - PULMONARY MASS [None]
